FAERS Safety Report 24273357 (Version 4)
Quarter: 2024Q4

REPORT INFORMATION
  Report Type: Spontaneous
  Country: PR (occurrence: PR)
  Receive Date: 20240902
  Receipt Date: 20241025
  Transmission Date: 20250114
  Serious: Yes (Hospitalization, Other)
  Sender: BRISTOL-MYERS SQUIBB COMPANY
  Company Number: PR-BRISTOL-MYERS SQUIBB COMPANY-2024-136023

PATIENT
  Age: 77 Year
  Sex: Male
  Weight: 103.42 kg

DRUGS (8)
  1. REVLIMID [Suspect]
     Active Substance: LENALIDOMIDE
     Indication: Plasma cell myeloma
     Dosage: FOR 21 DAYS 7 DAYS OFF
     Route: 048
     Dates: start: 20231207
  2. REVLIMID [Suspect]
     Active Substance: LENALIDOMIDE
     Dosage: FOR 21 DAYS 7 DAYS OFF
     Route: 048
     Dates: start: 20231207
  3. LISINOPRIL [Concomitant]
     Active Substance: LISINOPRIL
     Indication: Product used for unknown indication
  4. LATANOPROST [Concomitant]
     Active Substance: LATANOPROST
     Indication: Product used for unknown indication
  5. METFORMIN HYDROCHLORIDE [Concomitant]
     Active Substance: METFORMIN HYDROCHLORIDE
     Indication: Product used for unknown indication
  6. ATORVASTATIN [Concomitant]
     Active Substance: ATORVASTATIN
     Indication: Product used for unknown indication
  7. AMLODIPINE BESYLATE [Concomitant]
     Active Substance: AMLODIPINE BESYLATE
  8. GABAPENTIN [Concomitant]
     Active Substance: GABAPENTIN

REACTIONS (9)
  - Fall [Recovering/Resolving]
  - Femur fracture [Recovering/Resolving]
  - Blood potassium decreased [Recovering/Resolving]
  - Haemoglobin decreased [Recovering/Resolving]
  - Calculus urinary [Recovered/Resolved]
  - Post procedural infection [Recovered/Resolved]
  - Asthenia [Unknown]
  - Sluggishness [Unknown]
  - Incoherent [Unknown]

NARRATIVE: CASE EVENT DATE: 20240901
